FAERS Safety Report 7890135-3 (Version None)
Quarter: 2011Q4

REPORT INFORMATION
  Report Type: 
  Country: None (occurrence: None)
  Receive Date: 20111103
  Receipt Date: 20111027
  Transmission Date: 20120403
  Serious: Yes (Hospitalization, Other)
  Sender: FDA-Public Use
  Company Number: US-AMGEN-USASP2011056272

PATIENT
  Age: 65 Year
  Sex: Female
  Weight: 49.433 kg

DRUGS (1)
  1. PROCRIT [Suspect]
     Indication: ANAEMIA
     Dosage: UNK
     Route: 058
     Dates: start: 20111025

REACTIONS (4)
  - DRUG DISPENSING ERROR [None]
  - WRONG DRUG ADMINISTERED [None]
  - FALL [None]
  - GAIT DISTURBANCE [None]
